FAERS Safety Report 7309441-6 (Version None)
Quarter: 2011Q1

REPORT INFORMATION
  Report Type: 
  Country: None (occurrence: None)
  Receive Date: 20110223
  Receipt Date: 20110214
  Transmission Date: 20110831
  Serious: Yes (Hospitalization)
  Sender: FDA-Public Use
  Company Number: JP-ASTRAZENECA-2011SE02311

PATIENT
  Age: 19886 Day
  Sex: Male

DRUGS (19)
  1. VEMAS S [Concomitant]
  2. LAMISIL [Concomitant]
  3. SEROQUEL [Suspect]
     Indication: RESTLESSNESS
     Route: 048
     Dates: end: 20110104
  4. ALEVIATIN [Concomitant]
  5. PRIMIDONE [Concomitant]
  6. MAGNESIUM OXIDE HEAVY [Concomitant]
  7. PHENOBAL [Concomitant]
  8. AMOBAN [Concomitant]
  9. DEPAKENE [Concomitant]
  10. TRANQUILIZERS [Concomitant]
  11. RIVOTRIL [Concomitant]
  12. BONALON [Concomitant]
  13. BLONANSERIN [Concomitant]
  14. ZYPREXA [Suspect]
     Indication: RESTLESSNESS
     Route: 048
     Dates: end: 20110104
  15. ALFAROL [Concomitant]
  16. RISPERDAL [Suspect]
     Indication: RESTLESSNESS
     Dosage: 8 MG DAILY (THREE TIMES A DAY)
     Route: 048
     Dates: end: 20110104
  17. LEVOTOMIN [Concomitant]
  18. PURSENNID [Concomitant]
  19. ROHYPNOL [Concomitant]

REACTIONS (1)
  - HYPOGLYCAEMIA [None]
